FAERS Safety Report 5257596-X (Version None)
Quarter: 2007Q1

REPORT INFORMATION
  Report Type: 
  Country: None (occurrence: None)
  Receive Date: 20070307
  Receipt Date: 20061227
  Transmission Date: 20070707
  Serious: No
  Sender: FDA-Public Use
  Company Number: US-GLAXOSMITHKLINE-A0632628A

PATIENT
  Age: 53 Year
  Sex: Male

DRUGS (6)
  1. REQUIP [Suspect]
     Indication: RESTLESS LEGS SYNDROME
     Dosage: 3MG PER DAY
     Route: 048
     Dates: start: 20060601
  2. PROVIGIL [Concomitant]
  3. LISINOPRIL [Concomitant]
  4. HYDROCHLOROTHIAZIDE [Concomitant]
  5. ANDROGEL [Concomitant]
  6. CADUET [Concomitant]

REACTIONS (4)
  - COLD SWEAT [None]
  - DYSKINESIA [None]
  - NAUSEA [None]
  - SOMNOLENCE [None]
